FAERS Safety Report 18735114 (Version 2)
Quarter: 2021Q3

REPORT INFORMATION
  Report Type: Report from Study
  Country: ZA (occurrence: ZA)
  Receive Date: 20210113
  Receipt Date: 20210701
  Transmission Date: 20211014
  Serious: Yes (Hospitalization, Other)
  Sender: FDA-Public Use
  Company Number: PHHY2018ZA009158

PATIENT
  Age: 40 Year
  Sex: Female

DRUGS (4)
  1. SERDEP [Concomitant]
     Indication: PRODUCT USED FOR UNKNOWN INDICATION
     Dosage: 1/2 TABLET 2 PER DAY
     Route: 065
  2. METHOTREXATE. [Concomitant]
     Active Substance: METHOTREXATE
     Indication: ARTHROPATHY
     Dosage: 20 MG, QW
     Route: 065
     Dates: start: 202011
  3. TUVIGIN [Suspect]
     Active Substance: FINGOLIMOD HYDROCHLORIDE
     Dosage: 0.5 MG, QD
     Route: 048
     Dates: start: 20180523
  4. TUVIGIN [Suspect]
     Active Substance: FINGOLIMOD HYDROCHLORIDE
     Indication: RELAPSING-REMITTING MULTIPLE SCLEROSIS
     Dosage: 0.5 MG, QD
     Route: 048
     Dates: start: 20180523

REACTIONS (23)
  - Varicella virus test positive [Unknown]
  - Eye pain [Unknown]
  - Headache [Unknown]
  - Lymphocyte count decreased [Unknown]
  - Hot flush [Recovering/Resolving]
  - Malaise [Unknown]
  - Pathology test [Unknown]
  - Blood pressure fluctuation [Recovering/Resolving]
  - Heart rate decreased [Recovering/Resolving]
  - Hypoaesthesia [Unknown]
  - Oxygen saturation decreased [Unknown]
  - Epstein-Barr virus antibody positive [Unknown]
  - Haemoglobin decreased [Unknown]
  - Mean cell haemoglobin decreased [Unknown]
  - Blood iron decreased [Unknown]
  - White blood cell count decreased [Unknown]
  - Serum ferritin decreased [Unknown]
  - Multiple sclerosis relapse [Unknown]
  - Psoriatic arthropathy [Unknown]
  - Throat irritation [Recovering/Resolving]
  - Pain [Unknown]
  - Glomerular filtration rate decreased [Unknown]
  - Haematocrit decreased [Unknown]

NARRATIVE: CASE EVENT DATE: 20180523
